FAERS Safety Report 8010048-6 (Version None)
Quarter: 2011Q4

REPORT INFORMATION
  Report Type: 
  Country: None (occurrence: None)
  Receive Date: 20111221
  Receipt Date: 20111212
  Transmission Date: 20120403
  Serious: Yes (Hospitalization, Other)
  Sender: FDA-Public Use
  Company Number: 2011P1014276

PATIENT
  Age: 23 Year
  Sex: Male

DRUGS (4)
  1. RISPERIDONE [Suspect]
     Indication: SCHIZOPHRENIA
     Dosage: 4-6 MG;QD 4 MG;QD
  2. RISPERIDONE [Suspect]
     Indication: PSYCHOTIC DISORDER
     Dosage: 4-6 MG;QD 4 MG;QD
  3. PROMETHAZINE [Concomitant]
  4. METHOTRIMEPRAZINE [Concomitant]

REACTIONS (9)
  - DYSTONIA [None]
  - HYPOKINESIA [None]
  - PSYCHOTIC DISORDER [None]
  - DELUSION [None]
  - EXTRAPYRAMIDAL DISORDER [None]
  - WITHDRAWAL SYNDROME [None]
  - ANXIETY [None]
  - HYPOMANIA [None]
  - TREMOR [None]
